FAERS Safety Report 13755033 (Version 1)
Quarter: 2017Q3

REPORT INFORMATION
  Report Type: Spontaneous
  Country: US (occurrence: US)
  Receive Date: 20170714
  Receipt Date: 20170714
  Transmission Date: 20171127
  Serious: Yes (Death, Hospitalization)
  Sender: FDA-Public Use
  Company Number: US-MYLANLABS-2017M1041692

PATIENT

DRUGS (3)
  1. MAGNESIUM OXIDE. [Suspect]
     Active Substance: MAGNESIUM OXIDE
     Indication: CONSTIPATION
     Route: 065
  2. MAGNESIUM [Suspect]
     Active Substance: MAGNESIUM
     Indication: CONSTIPATION
     Route: 065
  3. MAGNESIUM HYDROXIDE. [Suspect]
     Active Substance: MAGNESIUM HYDROXIDE
     Indication: CONSTIPATION
     Route: 065

REACTIONS (8)
  - Bradycardia [Not Recovered/Not Resolved]
  - Respiratory acidosis [Unknown]
  - Hypermagnesaemia [Recovering/Resolving]
  - Bundle branch block [Unknown]
  - Hypotension [Not Recovered/Not Resolved]
  - Acute kidney injury [Unknown]
  - Cardio-respiratory arrest [Fatal]
  - Drug ineffective [Unknown]
